FAERS Safety Report 21969326 (Version 1)
Quarter: 2023Q1

REPORT INFORMATION
  Report Type: Spontaneous
  Country: US (occurrence: US)
  Receive Date: 20230208
  Receipt Date: 20230208
  Transmission Date: 20230418
  Serious: Yes (Other)
  Sender: FDA-Public Use
  Company Number: US-INSUD PHARMA-2302US00624

PATIENT

DRUGS (1)
  1. CLOBETASOL [Suspect]
     Active Substance: CLOBETASOL
     Indication: Lichen planus
     Dosage: APPLIED DIFFUSELY ACROSS TORSO AND EXTREMITIES FOR LAST 4 MONTHS
     Route: 061

REACTIONS (11)
  - Type 1 diabetes mellitus [Unknown]
  - Fatigue [Unknown]
  - Weight decreased [Unknown]
  - Polyuria [Unknown]
  - Polydipsia [Unknown]
  - Vulvovaginal pruritus [Unknown]
  - Glycosuria [Unknown]
  - Ketonuria [Unknown]
  - Hyperglycaemia [Unknown]
  - Acanthosis nigricans [Unknown]
  - Insulin resistance [Unknown]
